FAERS Safety Report 7083859-1 (Version None)
Quarter: 2010Q4

REPORT INFORMATION
  Report Type: 
  Country: None (occurrence: None)
  Receive Date: 20101104
  Receipt Date: 20101025
  Transmission Date: 20110411
  Serious: Yes (Other)
  Sender: FDA-Public Use
  Company Number: FR-GENENTECH-308852

PATIENT

DRUGS (5)
  1. RITUXIMAB [Suspect]
     Indication: B-CELL LYMPHOMA
     Dosage: 375 MG/M2, UNK
     Route: 042
  2. FLUDARABINE PHOSPHATE [Suspect]
     Indication: B-CELL LYMPHOMA
     Dosage: 25 MG/M2, UNK
     Route: 042
  3. FLUDARABINE PHOSPHATE [Suspect]
     Dosage: UNK
     Route: 042
  4. MITOXANTRONE [Suspect]
     Indication: B-CELL LYMPHOMA
     Dosage: 10 MG/M2, UNK
     Route: 042
  5. MITOXANTRONE [Suspect]
     Dosage: UNK
     Route: 042

REACTIONS (21)
  - ALOPECIA [None]
  - ANAEMIA [None]
  - ARTHRITIS [None]
  - ASCITES [None]
  - ASTHMA [None]
  - BONE MARROW FAILURE [None]
  - CARDIOTOXICITY [None]
  - CHRONIC MYELOID LEUKAEMIA [None]
  - FEBRILE NEUTROPENIA [None]
  - HEPATOTOXICITY [None]
  - INFUSION RELATED REACTION [None]
  - JAUNDICE [None]
  - NEOPLASM [None]
  - NEPHROPATHY TOXIC [None]
  - NEUROTOXICITY [None]
  - NEUTROPENIA [None]
  - NEUTROPENIC INFECTION [None]
  - ORAL HERPES [None]
  - PULMONARY TOXICITY [None]
  - PYREXIA [None]
  - THROMBOCYTOPENIA [None]
